FAERS Safety Report 8266918-7 (Version None)
Quarter: 2012Q2

REPORT INFORMATION
  Report Type: 
  Country: None (occurrence: None)
  Receive Date: 20120404
  Receipt Date: 20120404
  Transmission Date: 20120825
  Serious: Yes (Other)
  Sender: FDA-Public Use
  Company Number: None

PATIENT
  Age: 54 Year
  Sex: Male
  Weight: 83.9154 kg

DRUGS (3)
  1. PEGASYS [Suspect]
     Indication: HEPATITIS C
     Dosage: 180MCG ONCE A WEEK SUBCUTANEOUS
     Route: 058
     Dates: start: 20120214, end: 20120402
  2. RIBAVIRIN [Suspect]
     Indication: HEPATITIS C
     Dosage: 600MG TWICE A DAY BY MOUTH
     Route: 048
     Dates: start: 20120214, end: 20120402
  3. INCIVEK [Concomitant]

REACTIONS (2)
  - PRURITUS [None]
  - RASH [None]
